FAERS Safety Report 11663828 (Version 1)
Quarter: 2015Q4

REPORT INFORMATION
  Report Type: Spontaneous
  Country: GB (occurrence: GB)
  Receive Date: 20151027
  Receipt Date: 20151027
  Transmission Date: 20160304
  Serious: Yes (Other)
  Sender: FDA-Public Use
  Company Number: GB-SUN PHARMACEUTICAL INDUSTRIES LTD-2015RR-104927

PATIENT

DRUGS (13)
  1. ALLOPURINOL. [Suspect]
     Active Substance: ALLOPURINOL
     Indication: HODGKIN^S DISEASE
     Dosage: MORNING. ABVD:7 DAYS STARTING DAYS 1 AND 15 OF CYCLE (FIRST 2 CYCLES). IGEV:7 DAYS (CYCLE 1 AND 2).
     Route: 048
     Dates: start: 2015
  2. GEMCITABINE [Suspect]
     Active Substance: GEMCITABINE\GEMCITABINE HYDROCHLORIDE
     Indication: HODGKIN^S DISEASE
     Dosage: IGEV REGIME.
     Route: 041
     Dates: start: 2015
  3. VINORELBINE [Suspect]
     Active Substance: VINORELBINE\VINORELBINE TARTRATE
     Indication: HODGKIN^S DISEASE
     Dosage: IGEV REGIME.
     Route: 041
     Dates: start: 2015
  4. PHENYTOIN. [Concomitant]
     Active Substance: PHENYTOIN
     Indication: PRODUCT USED FOR UNKNOWN INDICATION
     Dosage: FIRST 7 DAYS.
     Route: 065
     Dates: start: 2015
  5. PREDNISOLONE. [Concomitant]
     Active Substance: PREDNISOLONE
     Indication: PRODUCT USED FOR UNKNOWN INDICATION
     Route: 065
     Dates: start: 2015
  6. OMEPRAZOLE. [Concomitant]
     Active Substance: OMEPRAZOLE
     Indication: PRODUCT USED FOR UNKNOWN INDICATION
     Dosage: 20 G, QD
     Route: 048
     Dates: start: 2015
  7. FLUCONAZOLE. [Concomitant]
     Active Substance: FLUCONAZOLE
     Indication: PRODUCT USED FOR UNKNOWN INDICATION
     Dosage: 50 MG, QD
     Route: 065
     Dates: start: 2015
  8. IFOSFAMIDE. [Suspect]
     Active Substance: IFOSFAMIDE
     Indication: HODGKIN^S DISEASE
     Dosage: IGEV REGIME.
     Route: 041
     Dates: start: 2015
  9. COTRIMOXAZOLE [Suspect]
     Active Substance: SULFAMETHOXAZOLE\TRIMETHOPRIM
     Indication: HODGKIN^S DISEASE
     Dosage: BOTH REGIMES. 3 TIMES A WEEK (MONDAY, WEDNESDAY AND FRIDAY).
     Route: 048
     Dates: start: 2015
  10. CHLORHEXIDINE [Concomitant]
     Active Substance: CHLORHEXIDINE
     Indication: PRODUCT USED FOR UNKNOWN INDICATION
     Route: 065
     Dates: start: 2015
  11. ACICLOVIR [Suspect]
     Active Substance: ACYCLOVIR
     Indication: HODGKIN^S DISEASE
     Dosage: 400 MG, 28 DAYS PER REGIME.
     Route: 048
     Dates: start: 2015
  12. ONDANSETRON [Suspect]
     Active Substance: ONDANSETRON
     Indication: HODGKIN^S DISEASE
     Dosage: ABVD REGIME: FOR 2 DAYS ON DAYS 1 AND 15 OF CYCLE. IGEV REGIME: FOR 4 DAYS.
     Route: 048
     Dates: start: 2015
  13. FILGRASTIM [Concomitant]
     Active Substance: FILGRASTIM
     Indication: PRODUCT USED FOR UNKNOWN INDICATION
     Dosage: STARTING ON DAY 7.
     Route: 058
     Dates: start: 2015

REACTIONS (3)
  - Rash [Unknown]
  - Pruritus [Unknown]
  - Blister [Not Recovered/Not Resolved]

NARRATIVE: CASE EVENT DATE: 20150813
